FAERS Safety Report 8954749 (Version 2)
Quarter: 2013Q1

REPORT INFORMATION
  Report Type: Spontaneous
  Country: US (occurrence: US)
  Receive Date: 20121207
  Receipt Date: 20130108
  Transmission Date: 20140127
  Serious: Yes (Hospitalization)
  Sender: FDA-Public Use
  Company Number: US-GLAXOSMITHKLINE-A1004428A

PATIENT
  Age: 89 Year
  Sex: Female
  Weight: 51.8 kg

DRUGS (1)
  1. MELPHALAN [Suspect]
     Indication: PLASMA CELL MYELOMA
     Dosage: 6TAB PER DAY
     Route: 048
     Dates: start: 20110818, end: 20120409

REACTIONS (17)
  - Bone marrow failure [Recovering/Resolving]
  - Renal failure [Recovering/Resolving]
  - Atrial fibrillation [Recovering/Resolving]
  - Cerebral ischaemia [Unknown]
  - Cerebral infarction [Unknown]
  - Lacunar infarction [Unknown]
  - Arthralgia [Recovering/Resolving]
  - Hyponatraemia [Recovering/Resolving]
  - Fall [Recovering/Resolving]
  - Anaemia [Recovering/Resolving]
  - Disease progression [Recovering/Resolving]
  - Pleural effusion [Unknown]
  - Chest X-ray abnormal [Unknown]
  - Spinal osteoarthritis [Unknown]
  - Joint dislocation [Unknown]
  - Vascular calcification [Unknown]
  - Cardiomegaly [Unknown]
